FAERS Safety Report 19421203 (Version 1)
Quarter: 2021Q2

REPORT INFORMATION
  Report Type: Spontaneous
  Country: SE (occurrence: IN)
  Receive Date: 20210615
  Receipt Date: 20210615
  Transmission Date: 20210717
  Serious: Yes (Other)
  Sender: FDA-Public Use
  Company Number: SE-PFIZER INC-2021646075

PATIENT
  Sex: Female

DRUGS (2)
  1. PHENOBARBITAL. [Suspect]
     Active Substance: PHENOBARBITAL
     Dosage: 30 MG IN FIRST TRIMESTER
  2. PHENYTOIN. [Suspect]
     Active Substance: PHENYTOIN
     Dosage: FIRST TRIMESTER

REACTIONS (1)
  - Abortion spontaneous [Unknown]
